FAERS Safety Report 7271686-1 (Version None)
Quarter: 2011Q1

REPORT INFORMATION
  Report Type: 
  Country: None (occurrence: None)
  Receive Date: 20110203
  Receipt Date: 20110126
  Transmission Date: 20110831
  Serious: Yes (Other)
  Sender: FDA-Public Use
  Company Number: IT-JNJFOC-20110107230

PATIENT
  Age: 79 Year
  Sex: Female

DRUGS (9)
  1. PLAVIX [Interacting]
     Indication: ACUTE MYOCARDIAL INFARCTION
     Route: 048
  2. ATORVASTATIN [Concomitant]
     Route: 065
  3. COUMADIN [Interacting]
     Route: 048
  4. ESOMEPRAZOLE [Concomitant]
     Route: 065
  5. TAVANIC [Suspect]
     Indication: HYPERPYREXIA
     Route: 048
  6. SERTRALINE [Concomitant]
     Route: 065
  7. FUROSEMIDE [Concomitant]
     Route: 065
  8. ALLOPURINOL [Concomitant]
     Route: 065
  9. COUMADIN [Interacting]
     Indication: ATRIAL FIBRILLATION
     Route: 048

REACTIONS (3)
  - HYPOCOAGULABLE STATE [None]
  - DRUG INTERACTION [None]
  - INTERNATIONAL NORMALISED RATIO INCREASED [None]
